FAERS Safety Report 17316706 (Version 1)
Quarter: 2020Q1

REPORT INFORMATION
  Report Type: Spontaneous
  Country: US (occurrence: US)
  Receive Date: 20200124
  Receipt Date: 20200124
  Transmission Date: 20200409
  Serious: Yes (Other)
  Sender: FDA-Public Use
  Company Number: US-BAUSCH-BL-2020-001289

PATIENT
  Age: 60 Year
  Sex: Male
  Weight: 88.98 kg

DRUGS (4)
  1. ALREX [Concomitant]
     Active Substance: LOTEPREDNOL ETABONATE
     Indication: EYE ALLERGY
     Dosage: STARTED SAMPLES TWO DROPS IN THE LEFT EYE.?PRESCRIBED ON 03/DEC/2019
     Route: 047
     Dates: start: 201912, end: 201912
  2. ILEVRO [Suspect]
     Active Substance: NEPAFENAC
     Indication: PRODUCT USED FOR UNKNOWN INDICATION
     Dosage: BOTH EYES
     Route: 047
  3. PREDNISOLONE. [Suspect]
     Active Substance: PREDNISOLONE
     Indication: PRODUCT USED FOR UNKNOWN INDICATION
     Dosage: BOTH EYES
     Route: 047
     Dates: start: 201912
  4. PREDNISOLONE. [Suspect]
     Active Substance: PREDNISOLONE
     Dosage: BOTH EYES
     Route: 047
     Dates: start: 201912

REACTIONS (2)
  - Treatment noncompliance [Unknown]
  - Macular oedema [Unknown]
